FAERS Safety Report 19706176 (Version 3)
Quarter: 2022Q3

REPORT INFORMATION
  Report Type: Spontaneous
  Country: VE (occurrence: VE)
  Receive Date: 20210817
  Receipt Date: 20220803
  Transmission Date: 20221027
  Serious: Yes (Other)
  Sender: FDA-Public Use
  Company Number: VE-NOVARTISPH-NVSC2021VE179198

PATIENT
  Sex: Female

DRUGS (2)
  1. GLIVEC [Suspect]
     Active Substance: IMATINIB MESYLATE
     Indication: Chronic myeloid leukaemia
     Dosage: 400 MG (4X100 MG TABLETS)
     Route: 065
  2. GLIVEC [Suspect]
     Active Substance: IMATINIB MESYLATE
     Dosage: 400 MG (4X100 MG TABLETS)
     Route: 065

REACTIONS (8)
  - COVID-19 [Unknown]
  - Oxygen saturation decreased [Unknown]
  - Enterocolitis viral [Unknown]
  - Chronic myeloid leukaemia recurrent [Unknown]
  - Vomiting [Unknown]
  - Diarrhoea [Unknown]
  - White blood cell count increased [Unknown]
  - Platelet count increased [Unknown]
